FAERS Safety Report 11685767 (Version 1)
Quarter: 2015Q4

REPORT INFORMATION
  Report Type: Spontaneous
  Country: US (occurrence: None)
  Receive Date: 20151029
  Receipt Date: 20151029
  Transmission Date: 20160304
  Serious: Yes (Hospitalization)
  Sender: FDA-Public Use
  Company Number: None

PATIENT
  Age: 77 Year
  Sex: Male
  Weight: 81.4 kg

DRUGS (1)
  1. NAFCILLIN [Suspect]
     Active Substance: NAFCILLIN\NAFCILLIN SODIUM
     Indication: PNEUMONIA
     Dosage: 12 GM  OTHER IV
     Route: 042
     Dates: start: 20150924, end: 20150929

REACTIONS (2)
  - Nephritis [None]
  - Acute kidney injury [None]

NARRATIVE: CASE EVENT DATE: 20150929
